FAERS Safety Report 5456852-X (Version None)
Quarter: 2007Q3

REPORT INFORMATION
  Report Type: 
  Country: None (occurrence: None)
  Receive Date: 20070918
  Receipt Date: 20070430
  Transmission Date: 20080115
  Serious: Yes (Other)
  Sender: FDA-Public Use
  Company Number: US-ASTRAZENECA-2006UW26556

PATIENT
  Age: 35 Year
  Sex: Female
  Weight: 105.5 kg

DRUGS (7)
  1. SEROQUEL [Suspect]
     Indication: ANXIETY
     Route: 048
     Dates: start: 20010101, end: 20060101
  2. SEROQUEL [Suspect]
     Indication: DEPRESSION
     Route: 048
     Dates: start: 20010101, end: 20060101
  3. SEROQUEL [Suspect]
     Indication: OBSESSIVE-COMPULSIVE DISORDER
     Route: 048
     Dates: start: 20010101, end: 20060101
  4. SEROQUEL [Suspect]
     Route: 048
     Dates: start: 20060101
  5. SEROQUEL [Suspect]
     Route: 048
     Dates: start: 20060101
  6. SEROQUEL [Suspect]
     Route: 048
     Dates: start: 20060101
  7. OLANZAPINE [Suspect]
     Dates: start: 20050101

REACTIONS (2)
  - DEEP VEIN THROMBOSIS [None]
  - DIABETES MELLITUS [None]
